FAERS Safety Report 21203631 (Version 7)
Quarter: 2023Q2

REPORT INFORMATION
  Report Type: Report from Study
  Country: US (occurrence: US)
  Receive Date: 20220811
  Receipt Date: 20230610
  Transmission Date: 20230722
  Serious: No
  Sender: FDA-Public Use
  Company Number: US-NOVARTISTESTPH-NVSC2022US181807

PATIENT
  Age: 60 Year
  Sex: Female

DRUGS (3)
  1. KESIMPTA [Suspect]
     Active Substance: OFATUMUMAB
     Indication: Relapsing-remitting multiple sclerosis
     Dosage: 20 MG, QMO
     Route: 058
  2. KESIMPTA [Suspect]
     Active Substance: OFATUMUMAB
     Indication: Clinically isolated syndrome
  3. KESIMPTA [Suspect]
     Active Substance: OFATUMUMAB
     Indication: Secondary progressive multiple sclerosis

REACTIONS (9)
  - Pain in extremity [Unknown]
  - Feeling of body temperature change [Unknown]
  - COVID-19 [Recovered/Resolved]
  - Pain [Unknown]
  - Pyrexia [Unknown]
  - Cough [Unknown]
  - Sneezing [Unknown]
  - Urinary tract infection [Unknown]
  - Headache [Unknown]

NARRATIVE: CASE EVENT DATE: 20220804
